FAERS Safety Report 8676810 (Version 3)
Quarter: 2013Q4

REPORT INFORMATION
  Report Type: Spontaneous
  Country: US (occurrence: US)
  Receive Date: 20120723
  Receipt Date: 20131101
  Transmission Date: 20140711
  Serious: No
  Sender: FDA-Public Use
  Company Number: US-009507513-1206USA02190

PATIENT
  Sex: Male

DRUGS (8)
  1. PRINIVIL [Suspect]
     Route: 048
  2. GLYBURIDE [Concomitant]
  3. AMLODIPINE BESYLATE [Concomitant]
  4. LABETALOL HYDROCHLORIDE [Concomitant]
  5. FUROSEMIDE [Concomitant]
  6. PRAVASTATIN SODIUM [Concomitant]
  7. PRILOSEC [Concomitant]
  8. SILDENAFIL CITRATE [Concomitant]

REACTIONS (1)
  - Angioedema [Unknown]
